FAERS Safety Report 18168949 (Version 1)
Quarter: 2020Q3

REPORT INFORMATION
  Report Type: Spontaneous
  Country: US (occurrence: US)
  Receive Date: 20200819
  Receipt Date: 20200819
  Transmission Date: 20201103
  Serious: No
  Sender: FDA-Public Use
  Company Number: US-PFIZER INC-2020319776

PATIENT
  Age: 64 Year
  Sex: Female
  Weight: 106.59 kg

DRUGS (2)
  1. ARTHROTEC [Suspect]
     Active Substance: DICLOFENAC SODIUM\MISOPROSTOL
     Indication: INTERVERTEBRAL DISC PROTRUSION
     Dosage: 75 MG, 2X/DAY (75 MG IN THE MORNING ONE 75 IN THE EVENING)
     Route: 048
  2. ARTHROTEC [Suspect]
     Active Substance: DICLOFENAC SODIUM\MISOPROSTOL
     Indication: LIMB DISCOMFORT

REACTIONS (4)
  - Product use in unapproved indication [Unknown]
  - Dysstasia [Unknown]
  - Hypoaesthesia [Unknown]
  - Off label use [Unknown]
